FAERS Safety Report 8621883-5 (Version None)
Quarter: 2012Q3

REPORT INFORMATION
  Report Type: 
  Country: None (occurrence: None)
  Receive Date: 20120822
  Receipt Date: 20120822
  Transmission Date: 20120928
  Serious: Yes (Other)
  Sender: FDA-Public Use
  Company Number: None

PATIENT
  Sex: Male

DRUGS (1)
  1. AFINITOR [Suspect]
     Indication: NEOPLASM MALIGNANT
     Dosage: 10MG DAILY PO
     Route: 048
     Dates: start: 20120811

REACTIONS (5)
  - PAIN [None]
  - DYSPNOEA [None]
  - LUNG DISORDER [None]
  - ORAL PAIN [None]
  - DIZZINESS [None]
